FAERS Safety Report 11626193 (Version 1)
Quarter: 2015Q4

REPORT INFORMATION
  Report Type: Spontaneous
  Country: KR (occurrence: KR)
  Receive Date: 20151013
  Receipt Date: 20151013
  Transmission Date: 20160304
  Serious: Yes (Life-Threatening, Hospitalization, Other)
  Sender: FDA-Public Use
  Company Number: KR-009507513-1508KOR001405

PATIENT
  Age: 57 Year
  Sex: Male
  Weight: 61.65 kg

DRUGS (8)
  1. ACYCLOVIR. [Concomitant]
     Active Substance: ACYCLOVIR
     Indication: ANTIVIRAL PROPHYLAXIS
     Dosage: 900 MG, QD
     Route: 042
     Dates: start: 20131209, end: 20131213
  2. SMECTA [Concomitant]
     Active Substance: MONTMORILLONITE
     Indication: DIARRHOEA
     Dosage: 60 ML, QD
     Route: 048
     Dates: start: 20131213, end: 20131215
  3. TRIMEBUTINE [Concomitant]
     Active Substance: TRIMEBUTINE
     Indication: DIARRHOEA
     Dosage: 300 MG, QD
     Route: 048
     Dates: start: 20131213, end: 20131222
  4. LOPERAMIDE [Concomitant]
     Active Substance: LOPERAMIDE
     Indication: DIARRHOEA
     Dosage: 4 MG, QD
     Route: 048
     Dates: start: 20131207, end: 20131210
  5. NOXAFIL [Suspect]
     Active Substance: POSACONAZOLE
     Indication: ANTIFUNGAL PROPHYLAXIS
     Dosage: 200 MG, TID(200 MG IN AN ORAL SUSPENSION GIVEN THREE TIMES PER DAY DURING MEALS WAS STARTED)
     Route: 048
     Dates: start: 20131110, end: 20131222
  6. MOSAPRIDE [Concomitant]
     Active Substance: MOSAPRIDE
     Indication: GASTRIC DISORDER
     Dosage: 15 MG, QD
     Route: 048
     Dates: start: 20131110, end: 20131222
  7. ALBIS [Concomitant]
     Active Substance: BISMUTH SUBCITRATE\RANITIDINE HYDROCHLORIDE\SUCRALFATE
     Indication: GASTRIC DISORDER
     Dosage: (RANITIDINE 84 MG,SUCRALFATE 300 MG/1T)2 DF, QD
     Route: 048
     Dates: start: 20131111, end: 20131222
  8. FILGRASTIM [Concomitant]
     Active Substance: FILGRASTIM
     Indication: NEUTROPHIL COUNT DECREASED
     Dosage: 300 MICROGRAM, QD
     Route: 058
     Dates: start: 20131119, end: 20131222

REACTIONS (2)
  - Drug ineffective [Unknown]
  - Pulmonary mycosis [Recovered/Resolved]

NARRATIVE: CASE EVENT DATE: 20131223
